FAERS Safety Report 4428693-3 (Version None)
Quarter: 2004Q3

REPORT INFORMATION
  Report Type: 
  Country: None (occurrence: None)
  Receive Date: 20040818
  Receipt Date: 20031118
  Transmission Date: 20050211
  Serious: Yes (Hospitalization)
  Sender: FDA-Public Use
  Company Number: US-BRISTOL-MYERS SQUIBB COMPANY-12440137

PATIENT
  Age: 84 Year
  Sex: Male
  Weight: 62 kg

DRUGS (4)
  1. TEQUIN [Suspect]
     Indication: PNEUMONIA
     Route: 042
     Dates: start: 20020404, end: 20020410
  2. QUINAGLUTE [Suspect]
     Indication: ARRHYTHMIA
     Route: 048
     Dates: start: 20020410, end: 20020410
  3. CARDIZEM [Concomitant]
     Dates: start: 20020405, end: 20020413
  4. NITROGLYCERIN [Concomitant]
     Route: 061
     Dates: start: 20020405, end: 20020413

REACTIONS (2)
  - ELECTROCARDIOGRAM QT CORRECTED INTERVAL PROLONGED [None]
  - TORSADE DE POINTES [None]
